FAERS Safety Report 16122963 (Version 1)
Quarter: 2019Q1

REPORT INFORMATION
  Report Type: Spontaneous
  Country: FR (occurrence: FR)
  Receive Date: 20190327
  Receipt Date: 20190327
  Transmission Date: 20190418
  Serious: Yes (Hospitalization)
  Sender: FDA-Public Use
  Company Number: FR-TEVA-2019-FR-1030262

PATIENT
  Age: 77 Year
  Sex: Female

DRUGS (1)
  1. TAMOXIFENE BASE [Suspect]
     Active Substance: TAMOXIFEN
     Indication: BREAST CANCER
     Dosage: UNSPECIFIED
     Route: 048
     Dates: start: 20180908, end: 20190129

REACTIONS (2)
  - Thrombophlebitis superficial [Recovering/Resolving]
  - Deep vein thrombosis [Recovering/Resolving]

NARRATIVE: CASE EVENT DATE: 20190128
